FAERS Safety Report 8045509-7 (Version None)
Quarter: 2012Q1

REPORT INFORMATION
  Report Type: 
  Country: None (occurrence: None)
  Receive Date: 20120113
  Receipt Date: 20120109
  Transmission Date: 20120608
  Serious: Yes (Other)
  Sender: FDA-Public Use
  Company Number: US-US-EMD SERONO, INC.-7089949

PATIENT
  Sex: Male
  Weight: 60 kg

DRUGS (2)
  1. REBIF [Suspect]
     Indication: MULTIPLE SCLEROSIS
     Route: 058
     Dates: start: 20110930
  2. REBIF [Suspect]
     Route: 058

REACTIONS (7)
  - SUICIDAL IDEATION [None]
  - INJECTION SITE NODULE [None]
  - PAIN [None]
  - BLOOD PRESSURE INCREASED [None]
  - RASH [None]
  - INJECTION SITE ERYTHEMA [None]
  - INJECTION SITE PAIN [None]
